FAERS Safety Report 6142287-3 (Version None)
Quarter: 2009Q2

REPORT INFORMATION
  Report Type: 
  Country: None (occurrence: None)
  Receive Date: 20090402
  Receipt Date: 20090402
  Transmission Date: 20091009
  Serious: Yes (Other)
  Sender: FDA-Public Use
  Company Number: None

PATIENT
  Sex: Female

DRUGS (1)
  1. COREG [Suspect]
     Indication: CORONARY ARTERY DISEASE
     Dosage: 6.25 MG BID

REACTIONS (1)
  - DIARRHOEA [None]
